FAERS Safety Report 6029853-0 (Version None)
Quarter: 2008Q4

REPORT INFORMATION
  Report Type: 
  Country: None (occurrence: None)
  Receive Date: 20081222
  Receipt Date: 20081002
  Transmission Date: 20090506
  Serious: No
  Sender: FDA-Public Use
  Company Number: US-WYE-H06247508

PATIENT
  Age: 53 Year
  Sex: Male
  Weight: 106.69 kg

DRUGS (3)
  1. PRISTIQ [Suspect]
     Indication: DEPRESSION
     Dosage: 50 MG 1X PER 1 DAY, ORAL
     Route: 048
     Dates: start: 20081001, end: 20081001
  2. ANDROGEL [Concomitant]
  3. NEXIUM [Concomitant]

REACTIONS (10)
  - ABDOMINAL PAIN UPPER [None]
  - CHEST DISCOMFORT [None]
  - DISTURBANCE IN ATTENTION [None]
  - DIZZINESS [None]
  - DRY MOUTH [None]
  - INSOMNIA [None]
  - IRRITABILITY [None]
  - RESTLESSNESS [None]
  - TREMOR [None]
  - VISION BLURRED [None]
